FAERS Safety Report 20374069 (Version 2)
Quarter: 2022Q1

REPORT INFORMATION
  Report Type: Spontaneous
  Country: JP (occurrence: JP)
  Receive Date: 20220125
  Receipt Date: 20220211
  Transmission Date: 20220423
  Serious: Yes (Death)
  Sender: FDA-Public Use
  Company Number: JP-Eisai-202111065_ART_P_1

PATIENT
  Sex: Female

DRUGS (1)
  1. ARICEPT [Suspect]
     Active Substance: DONEPEZIL HYDROCHLORIDE
     Indication: Dementia
     Route: 048

REACTIONS (1)
  - Cardiac failure [Fatal]
